FAERS Safety Report 7717927-5 (Version None)
Quarter: 2011Q3

REPORT INFORMATION
  Report Type: 
  Country: None (occurrence: None)
  Receive Date: 20110830
  Receipt Date: 20110825
  Transmission Date: 20111222
  Serious: Yes (Other)
  Sender: FDA-Public Use
  Company Number: CHPA2011CA11494

PATIENT
  Sex: Female

DRUGS (3)
  1. HABITROL [Suspect]
     Indication: SMOKING CESSATION THERAPY
     Dosage: 14 MG, QD
     Route: 062
     Dates: start: 20110808
  2. HABITROL [Suspect]
     Dosage: 21 MG, QD
     Route: 062
     Dates: start: 20110727, end: 20110801
  3. HABITROL [Suspect]
     Dosage: 7 MG, QD
     Route: 062

REACTIONS (5)
  - INAPPROPRIATE SCHEDULE OF DRUG ADMINISTRATION [None]
  - TACHYCARDIA [None]
  - ABNORMAL DREAMS [None]
  - HEART RATE INCREASED [None]
  - HYPOTENSION [None]
